FAERS Safety Report 18537938 (Version 1)
Quarter: 2020Q4

REPORT INFORMATION
  Report Type: Spontaneous
  Country: US (occurrence: US)
  Receive Date: 20201124
  Receipt Date: 20201124
  Transmission Date: 20210114
  Serious: No
  Sender: FDA-Public Use
  Company Number: US-CELGENEUS-USA-20201104430

PATIENT
  Sex: Female
  Weight: 68 kg

DRUGS (3)
  1. REVLIMID [Suspect]
     Active Substance: LENALIDOMIDE
     Dosage: 15 MILLIGRAM
     Route: 048
     Dates: start: 202010
  2. REVLIMID [Suspect]
     Active Substance: LENALIDOMIDE
     Route: 048
     Dates: start: 20200902
  3. REVLIMID [Suspect]
     Active Substance: LENALIDOMIDE
     Indication: PLASMA CELL MYELOMA
     Dosage: 20 MILLIGRAM
     Route: 048
     Dates: start: 202008

REACTIONS (7)
  - Flatulence [Unknown]
  - Gait disturbance [Unknown]
  - Insomnia [Unknown]
  - Diarrhoea [Unknown]
  - Balance disorder [Unknown]
  - Visual impairment [Unknown]
  - Paraesthesia [Unknown]

NARRATIVE: CASE EVENT DATE: 2020
